FAERS Safety Report 20462952 (Version 1)
Quarter: 2022Q1

REPORT INFORMATION
  Report Type: Report from Study
  Country: US (occurrence: US)
  Receive Date: 20220211
  Receipt Date: 20220211
  Transmission Date: 20220423
  Serious: Yes (Hospitalization)
  Sender: FDA-Public Use
  Company Number: US-JAZZ-2021-US-006968

PATIENT
  Age: 25 Year
  Sex: Male
  Weight: 60.8 kg

DRUGS (15)
  1. ASPARAGINASE ERWINIA CHRYSANTHEMI [Suspect]
     Active Substance: ASPARAGINASE ERWINIA CHRYSANTHEMI
     Indication: Acute lymphocytic leukaemia
     Dosage: 25 MILLIGRAM/SQ. METER, 3XWEEKLY PER 2W COURSE
     Route: 030
     Dates: start: 20210125, end: 20210205
  2. ASPARAGINASE ERWINIA CHRYSANTHEMI [Suspect]
     Active Substance: ASPARAGINASE ERWINIA CHRYSANTHEMI
     Dosage: 25 MILLIGRAM/SQ. METER, 3XWEEKLY PER 2W COURSE
     Route: 030
     Dates: start: 20210301, end: 20210312
  3. ASPARAGINASE ERWINIA CHRYSANTHEMI [Suspect]
     Active Substance: ASPARAGINASE ERWINIA CHRYSANTHEMI
     Dosage: 25 MILLIGRAM/SQ. METER, 3XWEEKLY PER 2W COURSE
     Route: 030
     Dates: start: 20210412, end: 20210414
  4. VINCRISTINE [Suspect]
     Active Substance: VINCRISTINE
     Dosage: 1.5 MILLIGRAM/SQ. METER, SINGLE
     Route: 042
     Dates: start: 20210407, end: 20210407
  5. METHOTREXATE [Suspect]
     Active Substance: METHOTREXATE
     Dosage: 170 MILLIGRAM, SINGLE
     Route: 042
     Dates: start: 20210407, end: 20210407
  6. EPINEPHRINE [Concomitant]
     Active Substance: EPINEPHRINE
     Dosage: 03 MILLIGRAM, SINGLE
     Route: 030
     Dates: start: 20210107
  7. GABAPENTIN [Concomitant]
     Active Substance: GABAPENTIN
     Dosage: 300 MILLIGRAM, 1 PER DAY ON DAY1, 2XDAY ON DAY2, + 3XDAY ON DAY3 ONWARDS
     Route: 048
     Dates: start: 20210125, end: 20210421
  8. LACTULOSE [Concomitant]
     Active Substance: LACTULOSE
     Dosage: 30 MILLILITER, 2X/DAY, PRN CONSTIPATION
     Route: 048
     Dates: start: 20210412
  9. LIDOCAINE PRILOCAINE BIOGARAN [Concomitant]
     Dosage: APPLY TOPICALL TO AFFECTED AREA ONCE, PRN
     Route: 061
     Dates: start: 20210405, end: 20210407
  10. METOCLOPRAMIDE [Concomitant]
     Active Substance: METOCLOPRAMIDE
     Dosage: 10 MILLIGRAM, 1 TAB/3X BEFORE MEALS
     Route: 048
     Dates: start: 20210405, end: 20210703
  11. OMEPRAZOLE [Concomitant]
     Active Substance: OMEPRAZOLE
     Dosage: 40 MILLIGRAM, QD FOR 30DAYS
     Route: 048
     Dates: start: 20210211, end: 20210710
  12. ATIVAN [Concomitant]
     Active Substance: LORAZEPAM
     Dosage: 1 MILLIGRAM, PRN Q6H
     Route: 048
     Dates: start: 20210308, end: 20210314
  13. CHOLECALCIFEROL [Concomitant]
     Active Substance: CHOLECALCIFEROL
     Dosage: 1000 UNITS, QD
     Route: 048
     Dates: start: 20210211, end: 20210610
  14. HYDROXYZINE HYDROCHLORIDE [Concomitant]
     Active Substance: HYDROXYZINE HYDROCHLORIDE
     Dosage: 2 25 MILLIGRAM TABS, PRN EVERY 6 HOURS
     Route: 048
     Dates: start: 20201221, end: 20210119
  15. ONDANSETRON [Concomitant]
     Active Substance: ONDANSETRON
     Dosage: 1 TAB (8 MILLIGRAM), TID PRN FOR NAUSEA
     Route: 048
     Dates: start: 20201209, end: 20210308

REACTIONS (3)
  - Decreased appetite [Not Recovered/Not Resolved]
  - Weight decreased [Not Recovered/Not Resolved]
  - Stomatitis [Recovered/Resolved]

NARRATIVE: CASE EVENT DATE: 20210411
